FAERS Safety Report 12069235 (Version 1)
Quarter: 2016Q1

REPORT INFORMATION
  Report Type: Spontaneous
  Country: FR (occurrence: FR)
  Receive Date: 20160211
  Receipt Date: 20160211
  Transmission Date: 20160526
  Serious: Yes (Hospitalization)
  Sender: FDA-Public Use
  Company Number: FR-PFIZER INC-2016068799

PATIENT
  Age: 7 Year
  Sex: Male

DRUGS (2)
  1. TOFRANIL [Suspect]
     Active Substance: IMIPRAMINE HYDROCHLORIDE
     Indication: ENURESIS
     Dosage: 30 MG, DAILY
     Route: 048
     Dates: start: 20160115, end: 20160117
  2. TOVIAZ [Suspect]
     Active Substance: FESOTERODINE FUMARATE
     Indication: ENURESIS
     Dosage: 2 MG, DAILY
     Route: 048
     Dates: end: 20160117

REACTIONS (8)
  - Drug prescribing error [Unknown]
  - Hypotension [Recovered/Resolved]
  - Urinary retention [Recovered/Resolved]
  - Rash [Recovered/Resolved]
  - Product use issue [Unknown]
  - Tachycardia [Recovering/Resolving]
  - Oedema peripheral [Not Recovered/Not Resolved]
  - Vomiting [Recovered/Resolved]

NARRATIVE: CASE EVENT DATE: 20160117
